FAERS Safety Report 5317695-0 (Version None)
Quarter: 2007Q2

REPORT INFORMATION
  Report Type: 
  Country: None (occurrence: None)
  Receive Date: 20070507
  Receipt Date: 20070426
  Transmission Date: 20071010
  Serious: Yes (Hospitalization)
  Sender: FDA-Public Use
  Company Number: US-JNJFOC-20070406548

PATIENT
  Age: 24 Year
  Sex: Male

DRUGS (4)
  1. INVEGA [Suspect]
     Route: 048
  2. INVEGA [Suspect]
     Indication: SCHIZOPHRENIA
     Route: 048
  3. ESCITALOPRAM OXALATE [Concomitant]
  4. DEPAKOTE [Concomitant]

REACTIONS (2)
  - ANXIETY [None]
  - HYPERTENSION [None]
